FAERS Safety Report 14371265 (Version 1)
Quarter: 2018Q1

REPORT INFORMATION
  Report Type: Spontaneous
  Country: US (occurrence: US)
  Receive Date: 20180109
  Receipt Date: 20180109
  Transmission Date: 20180509
  Serious: Yes (Death)
  Sender: FDA-Public Use
  Company Number: None

PATIENT
  Age: 53 Year
  Sex: Male

DRUGS (1)
  1. ESBRIET [Suspect]
     Active Substance: PIRFENIDONE
     Indication: PULMONARY FIBROSIS
     Dosage: 267MG (TITRATION DOSE) QD PO??DATE OF EVENT GIVEN 15 DEC 2018 IS GREATER THAN CURRENT DATE : OMITTED
     Route: 048
     Dates: start: 20171213, end: 20171215

REACTIONS (1)
  - Death [None]
